FAERS Safety Report 14107369 (Version 1)
Quarter: 2017Q4

REPORT INFORMATION
  Report Type: Spontaneous
  Country: US (occurrence: None)
  Receive Date: 20171019
  Receipt Date: 20171019
  Transmission Date: 20180321
  Serious: No
  Sender: FDA-Public Use
  Company Number: None

PATIENT
  Sex: Female
  Weight: 74.84 kg

DRUGS (1)
  1. NEXPLANON [Suspect]
     Active Substance: ETONOGESTREL

REACTIONS (16)
  - Headache [None]
  - Administration site pain [None]
  - Metrorrhagia [None]
  - Weight increased [None]
  - Swelling [None]
  - Asthenia [None]
  - Apathy [None]
  - Breast tenderness [None]
  - Acne [None]
  - Breast discharge [None]
  - Dysmenorrhoea [None]
  - Mood swings [None]
  - Agitation [None]
  - Pain [None]
  - Application site pain [None]
  - Arthralgia [None]

NARRATIVE: CASE EVENT DATE: 20161214
